FAERS Safety Report 7380205-0 (Version None)
Quarter: 2011Q1

REPORT INFORMATION
  Report Type: 
  Country: None (occurrence: None)
  Receive Date: 20110329
  Receipt Date: 20110203
  Transmission Date: 20110831
  Serious: No
  Sender: FDA-Public Use
  Company Number: US-MYLANLABS-2011S1000580

PATIENT
  Age: 51 Year
  Sex: Female
  Weight: 62.14 kg

DRUGS (2)
  1. IBUPROFEN [Concomitant]
  2. ESTRADIOL [Suspect]
     Indication: HORMONE REPLACEMENT THERAPY
     Dosage: CHANGED QW
     Route: 062

REACTIONS (1)
  - HOT FLUSH [None]
